FAERS Safety Report 25629417 (Version 3)
Quarter: 2025Q3

REPORT INFORMATION
  Report Type: Report from Study
  Country: EU (occurrence: EU)
  Receive Date: 20250731
  Receipt Date: 20250926
  Transmission Date: 20251020
  Serious: Yes (Life-Threatening, Hospitalization, Other)
  Sender: MYLAN
  Company Number: EU-002147023-NVSC2025FR095284

PATIENT
  Sex: Female
  Weight: 65.5 kg

DRUGS (12)
  1. METFORMIN [Interacting]
     Active Substance: METFORMIN HYDROCHLORIDE
     Indication: Diabetes mellitus
     Dosage: 1000 MILLIGRAM, TID (3000 MG, QD)
  2. METFORMIN [Interacting]
     Active Substance: METFORMIN HYDROCHLORIDE
     Dosage: 1000 MILLIGRAM, TID (3000 MG, QD)
     Route: 048
  3. METFORMIN [Interacting]
     Active Substance: METFORMIN HYDROCHLORIDE
     Dosage: 1000 MILLIGRAM, TID (3000 MG, QD)
     Route: 048
  4. METFORMIN [Interacting]
     Active Substance: METFORMIN HYDROCHLORIDE
     Dosage: 1000 MILLIGRAM, TID (3000 MG, QD)
  5. KISQALI [Interacting]
     Active Substance: RIBOCICLIB SUCCINATE
     Indication: Hormone receptor positive HER2 negative breast cancer
     Dosage: 600 MILLIGRAM, QD
     Dates: start: 20250523, end: 20250606
  6. KISQALI [Interacting]
     Active Substance: RIBOCICLIB SUCCINATE
     Dosage: 600 MILLIGRAM, QD
     Dates: start: 20250523, end: 20250606
  7. KISQALI [Interacting]
     Active Substance: RIBOCICLIB SUCCINATE
     Dosage: 600 MILLIGRAM, QD
     Route: 048
     Dates: start: 20250523, end: 20250606
  8. KISQALI [Interacting]
     Active Substance: RIBOCICLIB SUCCINATE
     Dosage: 600 MILLIGRAM, QD
     Route: 048
     Dates: start: 20250523, end: 20250606
  9. KISQALI [Interacting]
     Active Substance: RIBOCICLIB SUCCINATE
     Dosage: 400 MILLIGRAM, QD
     Dates: start: 20250616, end: 20250811
  10. KISQALI [Interacting]
     Active Substance: RIBOCICLIB SUCCINATE
     Dosage: 400 MILLIGRAM, QD
     Dates: start: 20250616, end: 20250811
  11. KISQALI [Interacting]
     Active Substance: RIBOCICLIB SUCCINATE
     Dosage: 400 MILLIGRAM, QD
     Route: 048
     Dates: start: 20250616, end: 20250811
  12. KISQALI [Interacting]
     Active Substance: RIBOCICLIB SUCCINATE
     Dosage: 400 MILLIGRAM, QD
     Route: 048
     Dates: start: 20250616, end: 20250811

REACTIONS (12)
  - General physical health deterioration [Not Recovered/Not Resolved]
  - Asthenia [Recovered/Resolved]
  - Gait disturbance [Recovered/Resolved]
  - Tremor [Recovered/Resolved]
  - Confusional state [Recovered/Resolved]
  - Food refusal [Recovering/Resolving]
  - Vomiting [Recovered/Resolved]
  - Nausea [Recovered/Resolved]
  - Fall [Recovered/Resolved]
  - Generalised oedema [Not Recovered/Not Resolved]
  - Hepatic cytolysis [Not Recovered/Not Resolved]
  - Drug interaction [Unknown]

NARRATIVE: CASE EVENT DATE: 20250606
